FAERS Safety Report 6916456-6 (Version None)
Quarter: 2010Q3

REPORT INFORMATION
  Report Type: 
  Country: None (occurrence: None)
  Receive Date: 20100810
  Receipt Date: 20100728
  Transmission Date: 20110219
  Serious: Yes (Other)
  Sender: FDA-Public Use
  Company Number: PHHY2010DE49593

PATIENT

DRUGS (3)
  1. LEPONEX [Suspect]
     Dosage: 550 MG, QD
     Route: 048
     Dates: end: 20060601
  2. CITALOPRAM HYDROBROMIDE [Concomitant]
     Dosage: 30 MG, QD
  3. RISPERIDONE [Concomitant]
     Dosage: 37.5 MG, QD

REACTIONS (2)
  - ARTERIOSCLEROSIS [None]
  - LEUKOPENIA [None]
